FAERS Safety Report 4469029-1 (Version None)
Quarter: 2004Q4

REPORT INFORMATION
  Report Type: 
  Country: None (occurrence: None)
  Receive Date: 20041008
  Receipt Date: 20040928
  Transmission Date: 20050328
  Serious: Yes (Other)
  Sender: FDA-Public Use
  Company Number: PHEH2004US10445

PATIENT
  Age: 83 Year
  Sex: Male

DRUGS (7)
  1. ZOMETA [Suspect]
     Indication: PROSTATE CANCER METASTATIC
     Dosage: 6 MG, QMO
     Route: 042
     Dates: start: 20030701
  2. ALTACE [Concomitant]
  3. MEGACE [Concomitant]
  4. PRILOSEC [Concomitant]
  5. ASPIRIN [Concomitant]
  6. DETROL                                  /USA/ [Concomitant]
  7. CASODEX [Concomitant]

REACTIONS (4)
  - BONE LESION [None]
  - CONDITION AGGRAVATED [None]
  - INFECTION [None]
  - PAIN [None]
